FAERS Safety Report 12319892 (Version 2)
Quarter: 2016Q2

REPORT INFORMATION
  Report Type: Spontaneous
  Country: DE (occurrence: DE)
  Receive Date: 20160429
  Receipt Date: 20160630
  Transmission Date: 20160815
  Serious: Yes (Hospitalization, Other)
  Sender: FDA-Public Use
  Company Number: DE-BIOGEN-2016BI00228087

PATIENT
  Age: 0 Year
  Sex: Male
  Weight: 3 kg

DRUGS (1)
  1. TYSABRI [Suspect]
     Active Substance: NATALIZUMAB
     Indication: MATERNAL EXPOSURE TIMING UNSPECIFIED
     Route: 064
     Dates: start: 20100927, end: 20150408

REACTIONS (8)
  - Jaundice neonatal [Recovered/Resolved]
  - Neonatal disorder [Recovered/Resolved]
  - Inflammatory marker increased [Recovered/Resolved]
  - Foetal exposure timing unspecified [Recovered/Resolved]
  - Body temperature increased [Recovered/Resolved]
  - Neonatal infection [Recovered/Resolved]
  - Developmental hip dysplasia [Recovered/Resolved]
  - Amniocentesis abnormal [Recovered/Resolved]

NARRATIVE: CASE EVENT DATE: 20150331
